FAERS Safety Report 18093689 (Version 1)
Quarter: 2020Q3

REPORT INFORMATION
  Report Type: Spontaneous
  Country: US (occurrence: US)
  Receive Date: 20200730
  Receipt Date: 20200730
  Transmission Date: 20201103
  Serious: No
  Sender: FDA-Public Use
  Company Number: US-UNITED THERAPEUTICS-UNT-2020-011251

PATIENT
  Sex: Male

DRUGS (2)
  1. REMODULIN [Suspect]
     Active Substance: TREPROSTINIL
     Indication: PRODUCT USED FOR UNKNOWN INDICATION
     Dosage: UNK, CONTINUING
     Route: 041
     Dates: start: 20191007
  2. REMODULIN [Suspect]
     Active Substance: TREPROSTINIL
     Dosage: 0.0446 ?G/KG, CONTINUING
     Route: 041

REACTIONS (1)
  - Dermatitis contact [Unknown]
